FAERS Safety Report 10160495 (Version 1)
Quarter: 2014Q2

REPORT INFORMATION
  Report Type: Spontaneous
  Country: ES (occurrence: ES)
  Receive Date: 20140508
  Receipt Date: 20140508
  Transmission Date: 20141212
  Serious: Yes (Other)
  Sender: FDA-Public Use
  Company Number: ES-WATSON-2014-09350

PATIENT
  Age: 23 Year
  Sex: Female

DRUGS (2)
  1. ZONISAMIDE (WATSON LABORATORIES) [Suspect]
     Indication: MIGRAINE WITH AURA
     Dosage: 75 MG, QPM
     Route: 065
  2. SUMATRIPTAN [Concomitant]
     Indication: MIGRAINE WITH AURA
     Dosage: UNK
     Route: 065

REACTIONS (1)
  - Visual perseveration [Not Recovered/Not Resolved]
